FAERS Safety Report 24056396 (Version 1)
Quarter: 2024Q3

REPORT INFORMATION
  Report Type: Spontaneous
  Country: FR (occurrence: FR)
  Receive Date: 20240705
  Receipt Date: 20240705
  Transmission Date: 20241017
  Serious: Yes (Other)
  Sender: TEVA
  Company Number: None

PATIENT
  Age: 58 Year
  Sex: Female
  Weight: 45 kg

DRUGS (4)
  1. LISINOPRIL [Suspect]
     Active Substance: LISINOPRIL
     Indication: Dyspnoea exertional
     Dosage: LISINOPRIL TEVA, SCORED TABLET, 5 MG PER DAY THEN FROM 03/24/2016 10 MG/DAY
     Route: 048
     Dates: start: 20160304, end: 20231115
  2. MYCOPHENOLATE MOFETIL [Concomitant]
     Active Substance: MYCOPHENOLATE MOFETIL
     Indication: Prophylaxis against transplant rejection
     Dosage: NR
     Route: 048
     Dates: start: 200607
  3. TACROLIMUS [Suspect]
     Active Substance: TACROLIMUS
     Indication: Prophylaxis against transplant rejection
     Dosage: 11 MG PER DAY RECENTLY
     Route: 048
     Dates: start: 200607
  4. ZESTRIL [Suspect]
     Active Substance: LISINOPRIL
     Indication: Dyspnoea exertional
     Dosage: SCORED TABLET
     Route: 048
     Dates: start: 20231115, end: 20240115

REACTIONS (1)
  - Angioedema [Recovered/Resolved]

NARRATIVE: CASE EVENT DATE: 20190101
